FAERS Safety Report 15884646 (Version 1)
Quarter: 2019Q1

REPORT INFORMATION
  Report Type: Spontaneous
  Country: US (occurrence: US)
  Receive Date: 20190104
  Receipt Date: 20190104
  Transmission Date: 20190417
  Serious: Yes (Life-Threatening, Hospitalization)
  Sender: FDA-Public Use
  Company Number: None

PATIENT
  Age: 56 Year
  Sex: Male
  Weight: 72.3 kg

DRUGS (1)
  1. RITUXIMAB. [Suspect]
     Active Substance: RITUXIMAB
     Indication: CHRONIC LYMPHOCYTIC LEUKAEMIA
     Dosage: ?          OTHER DOSE:712.5MG;?
     Route: 042
     Dates: start: 20181121, end: 20181121

REACTIONS (8)
  - Abdominal pain [None]
  - Pallor [None]
  - Bradycardia [None]
  - Hypotension [None]
  - Anaphylactic reaction [None]
  - Hyperhidrosis [None]
  - Incontinence [None]
  - Pyrexia [None]
